FAERS Safety Report 11143697 (Version 1)
Quarter: 2015Q2

REPORT INFORMATION
  Report Type: Spontaneous
  Country: US (occurrence: US)
  Receive Date: 20150526
  Receipt Date: 20150526
  Transmission Date: 20150821
  Serious: No
  Sender: FDA-Public Use
  Company Number: US-ASTRAZENECA-2012BM11355

PATIENT
  Age: 51 Year
  Sex: Male

DRUGS (5)
  1. BYDUREON [Suspect]
     Active Substance: EXENATIDE
     Indication: DIABETES PROPHYLAXIS
     Route: 058
     Dates: start: 2012
  2. DIOVAN [Concomitant]
     Active Substance: VALSARTAN
     Indication: HYPERTENSION
     Route: 048
  3. BYETTA [Suspect]
     Active Substance: EXENATIDE
     Indication: DIABETES PROPHYLAXIS
     Route: 058
     Dates: start: 2012
  4. BYDUREON [Suspect]
     Active Substance: EXENATIDE
     Indication: GLUCOSE TOLERANCE IMPAIRED
     Route: 058
     Dates: start: 2012
  5. LOVASTATIN. [Concomitant]
     Active Substance: LOVASTATIN
     Route: 048

REACTIONS (4)
  - Injection site nodule [Not Recovered/Not Resolved]
  - Product use issue [Not Recovered/Not Resolved]
  - Injection site extravasation [Unknown]
  - Underdose [Unknown]

NARRATIVE: CASE EVENT DATE: 201207
